FAERS Safety Report 6809855-4 (Version None)
Quarter: 2010Q2

REPORT INFORMATION
  Report Type: 
  Country: None (occurrence: None)
  Receive Date: 20100630
  Receipt Date: 20100621
  Transmission Date: 20101027
  Serious: Yes (Other)
  Sender: FDA-Public Use
  Company Number: US-AMGEN-QUU412743

PATIENT
  Sex: Female
  Weight: 83.5 kg

DRUGS (4)
  1. NPLATE [Suspect]
     Indication: IDIOPATHIC THROMBOCYTOPENIC PURPURA
     Route: 058
     Dates: start: 20090527, end: 20090814
  2. CORTICOSTEROIDS [Concomitant]
  3. IMMU-G [Concomitant]
  4. PREDNISONE [Concomitant]
     Dates: start: 20060310

REACTIONS (1)
  - DRUG INEFFECTIVE [None]
